FAERS Safety Report 21511526 (Version 1)
Quarter: 2022Q4

REPORT INFORMATION
  Report Type: Report from Study
  Country: US (occurrence: US)
  Receive Date: 20221027
  Receipt Date: 20221027
  Transmission Date: 20230113
  Serious: No
  Sender: FDA-Public Use
  Company Number: US-ABBVIE-4150508

PATIENT
  Sex: Male

DRUGS (13)
  1. IMBRUVICA [Suspect]
     Active Substance: IBRUTINIB
     Indication: Chronic lymphocytic leukaemia
     Route: 048
     Dates: start: 20220401
  2. Ginger 500 mg [Concomitant]
     Indication: Product used for unknown indication
  3. OMEPRAZOLE [Concomitant]
     Active Substance: OMEPRAZOLE
     Indication: Product used for unknown indication
  4. RA Vitamin B-1 100 mg [Concomitant]
     Indication: Product used for unknown indication
  5. CoQ10  100 mg [Concomitant]
     Indication: Product used for unknown indication
  6. Turmeric 450 mg [Concomitant]
     Indication: Product used for unknown indication
  7. Alfuzosin HCl ER 10 mg [Concomitant]
     Indication: Product used for unknown indication
  8. Vitamin B-12 250 mcg [Concomitant]
     Indication: Product used for unknown indication
  9. Alpha-Lipoic Acid  100 mg [Concomitant]
     Indication: Product used for unknown indication
  10. PFIZER-BIONTECH COVID-19 VACCINE [Concomitant]
     Active Substance: TOZINAMERAN
     Indication: COVID-19 immunisation
  11. GABAPENTIN [Concomitant]
     Active Substance: GABAPENTIN
     Indication: Product used for unknown indication
  12. Vitamin B-6 50 mg [Concomitant]
     Indication: Product used for unknown indication
  13. Pravastatin Sodium  20 mg [Concomitant]
     Indication: Product used for unknown indication

REACTIONS (2)
  - Arthralgia [Not Recovered/Not Resolved]
  - Muscle spasms [Not Recovered/Not Resolved]

NARRATIVE: CASE EVENT DATE: 20220101
